FAERS Safety Report 12784487 (Version 1)
Quarter: 2016Q3

REPORT INFORMATION
  Report Type: Spontaneous
  Country: GB (occurrence: GB)
  Receive Date: 20160927
  Receipt Date: 20160927
  Transmission Date: 20161109
  Serious: Yes (Other)
  Sender: FDA-Public Use
  Company Number: GB-PFIZER INC-473799

PATIENT
  Age: 81 Year
  Sex: Female

DRUGS (13)
  1. FLURBIPROFEN. [Suspect]
     Active Substance: FLURBIPROFEN
     Indication: PREOPERATIVE CARE
     Dosage: UNK
     Route: 031
     Dates: start: 20070502, end: 20070502
  2. LIDOCAINE. [Suspect]
     Active Substance: LIDOCAINE
     Dosage: 2 ML, UNK
     Route: 065
     Dates: start: 20070502, end: 20070502
  3. OCUFEN [Suspect]
     Active Substance: FLURBIPROFEN SODIUM
     Indication: PREOPERATIVE CARE
     Dosage: 1 DF
     Route: 047
     Dates: start: 20070502, end: 20070502
  4. VANCOMYCIN HCL [Suspect]
     Active Substance: VANCOMYCIN HYDROCHLORIDE
     Indication: CATARACT OPERATION
     Dosage: 10 MG, UNK
     Route: 031
     Dates: start: 20070502, end: 20070502
  5. VANCOMYCIN HCL [Suspect]
     Active Substance: VANCOMYCIN HYDROCHLORIDE
     Indication: EYE IRRIGATION
  6. ADRENALINE /00003901/ [Suspect]
     Active Substance: EPINEPHRINE
     Indication: CATARACT OPERATION
     Dosage: 0.3 ML, UNK
     Route: 031
     Dates: start: 20070502, end: 20070502
  7. NEOMYCIN [Suspect]
     Active Substance: NEOMYCIN
     Indication: EYE OPERATION
     Dosage: UNK
     Route: 047
     Dates: start: 20070502, end: 20070502
  8. PHENYLEPHRINE [Suspect]
     Active Substance: PHENYLEPHRINE\PHENYLEPHRINE HYDROCHLORIDE
     Indication: CATARACT OPERATION
     Dosage: 1DF, 2.5% STRENGTH
     Route: 047
     Dates: start: 20070502, end: 20070502
  9. CYCLOPENTOLATE. [Suspect]
     Active Substance: CYCLOPENTOLATE
     Indication: CATARACT OPERATION
     Dosage: 1 DF,1% STRENGTH
     Route: 031
     Dates: start: 20070502, end: 20070502
  10. BETAMETHASONE. [Suspect]
     Active Substance: BETAMETHASONE
     Indication: EYE OPERATION
     Dosage: UNK
     Route: 047
     Dates: start: 20070502, end: 20070502
  11. HYALURONATE SODIUM [Suspect]
     Active Substance: HYALURONATE SODIUM
     Indication: CATARACT OPERATION
     Dosage: UNK
     Route: 047
     Dates: start: 20070502, end: 20070502
  12. ADRENALINE /00003901/ [Suspect]
     Active Substance: EPINEPHRINE
     Indication: EYE IRRIGATION
  13. POVIDONE-IODINE. [Suspect]
     Active Substance: POVIDONE-IODINE
     Dosage: UNK

REACTIONS (1)
  - Toxic anterior segment syndrome [Not Recovered/Not Resolved]

NARRATIVE: CASE EVENT DATE: 20070511
